FAERS Safety Report 7508406-9 (Version None)
Quarter: 2011Q2

REPORT INFORMATION
  Report Type: 
  Country: None (occurrence: None)
  Receive Date: 20110421
  Receipt Date: 20110414
  Transmission Date: 20111010
  Serious: Yes (Hospitalization)
  Sender: FDA-Public Use
  Company Number: SPV1-2010-02224

PATIENT
  Age: 11 Year
  Sex: Male
  Weight: 36.3 kg

DRUGS (2)
  1. VYVANSE [Suspect]
     Indication: ATTENTION DEFICIT/HYPERACTIVITY DISORDER
     Dosage: 40 MG, 1X/DAY: QD, ORAL
     Route: 048
     Dates: start: 20090101
  2. CLONIDINE [Concomitant]

REACTIONS (3)
  - CONVULSION [None]
  - DYSPNOEA [None]
  - FALL [None]
